FAERS Safety Report 8019944-7 (Version None)
Quarter: 2012Q1

REPORT INFORMATION
  Report Type: 
  Country: None (occurrence: None)
  Receive Date: 20120103
  Receipt Date: 20111229
  Transmission Date: 20120608
  Serious: Yes (Hospitalization, Other)
  Sender: FDA-Public Use
  Company Number: US-ABBOTT-12P-163-0888347-00

PATIENT
  Sex: Female
  Weight: 72.64 kg

DRUGS (11)
  1. FERROUS GLUCONATE [Concomitant]
     Indication: MINERAL SUPPLEMENTATION
  2. BENICAR [Concomitant]
     Indication: HYPERTENSION
  3. OXYBUTYNIN [Concomitant]
     Indication: BLADDER DISORDER
  4. NEXIUM [Concomitant]
     Indication: PRODUCT USED FOR UNKNOWN INDICATION
  5. PLAVIX [Suspect]
     Indication: CARDIAC DISORDER
  6. OMERAZOLE [Concomitant]
     Indication: GASTROOESOPHAGEAL REFLUX DISEASE
  7. SYNTHROID [Suspect]
     Indication: HYPOTHYROIDISM
     Dates: start: 19870101
  8. NIASPAN [Suspect]
     Indication: PRODUCT USED FOR UNKNOWN INDICATION
     Dosage: AT HS
     Dates: start: 20090101
  9. TRICOR [Suspect]
     Indication: BLOOD TRIGLYCERIDES INCREASED
     Dates: start: 20100101, end: 20110101
  10. ASPIRIN [Concomitant]
     Indication: CARDIAC DISORDER
  11. DULCOLAX [Concomitant]
     Indication: CONSTIPATION PROPHYLAXIS

REACTIONS (9)
  - PRURITUS [None]
  - CAROTID ARTERY OCCLUSION [None]
  - HYPOTENSION [None]
  - NEPHROPATHY [None]
  - CORONARY ARTERY OCCLUSION [None]
  - DRY MOUTH [None]
  - BLADDER DISORDER [None]
  - FEELING ABNORMAL [None]
  - FATIGUE [None]
